FAERS Safety Report 22280018 (Version 8)
Quarter: 2023Q4

REPORT INFORMATION
  Report Type: Report from Study
  Country: JP (occurrence: None)
  Receive Date: 20230503
  Receipt Date: 20231218
  Transmission Date: 20240109
  Serious: Yes (Life-Threatening, Hospitalization)
  Sender: FDA-Public Use
  Company Number: 2023A101887

PATIENT
  Age: 72 Year
  Sex: Male
  Weight: 70 kg

DRUGS (10)
  1. IMFINZI [Suspect]
     Active Substance: DURVALUMAB
     Indication: Hepatocellular carcinoma
     Route: 041
     Dates: start: 20230413, end: 20230413
  2. IMJUDO [Suspect]
     Active Substance: TREMELIMUMAB\TREMELIMUMAB-ACTL
     Indication: Hepatocellular carcinoma
     Route: 041
     Dates: start: 20230413, end: 20230413
  3. ELTROMBOPAG OLAMINE [Concomitant]
     Active Substance: ELTROMBOPAG OLAMINE
  4. SILODOSIN OD [Concomitant]
     Dates: start: 20210323
  5. LEVOCARNITINE FF [Concomitant]
     Dates: start: 20211214
  6. TSUMURA HOCHUEKKITO EXTRACT GRANULES FOR ETHICAL USE [Concomitant]
  7. VEMLIDY [Concomitant]
     Active Substance: TENOFOVIR ALAFENAMIDE FUMARATE
     Dates: start: 20210330
  8. CARBOCISTEI [Concomitant]
     Dates: start: 20210629
  9. ESOMEPRAZOLE [Concomitant]
     Active Substance: ESOMEPRAZOLE
     Dates: start: 20220706
  10. ACETAMINOPHEN [Concomitant]
     Active Substance: ACETAMINOPHEN
     Dates: start: 20210720

REACTIONS (3)
  - Immune thrombocytopenia [Recovered/Resolved]
  - Eczema [Recovered/Resolved]
  - Immune-mediated hepatic disorder [Unknown]

NARRATIVE: CASE EVENT DATE: 20230427
